FAERS Safety Report 15996489 (Version 2)
Quarter: 2019Q1

REPORT INFORMATION
  Report Type: Report from Study
  Country: CA (occurrence: CA)
  Receive Date: 20190222
  Receipt Date: 20190307
  Transmission Date: 20190418
  Serious: Yes (Hospitalization)
  Sender: FDA-Public Use
  Company Number: CA-TAIHO ONCOLOGY  INC-EU-2019-00361

PATIENT
  Age: 52 Year
  Sex: Male
  Weight: 104.5 kg

DRUGS (2)
  1. DECADRON [Concomitant]
     Active Substance: DEXAMETHASONE
     Dosage: NI
  2. LONSURF [Suspect]
     Active Substance: TIPIRACIL HYDROCHLORIDE\TRIFLURIDINE
     Indication: COLORECTAL CANCER METASTATIC
     Dosage: CURRENT CYCLE 1
     Route: 048
     Dates: start: 20190128, end: 20190207

REACTIONS (5)
  - Product dose omission [Unknown]
  - Pain [Not Recovered/Not Resolved]
  - Disease progression [Unknown]
  - Small intestinal obstruction [Unknown]
  - Vomiting [Not Recovered/Not Resolved]

NARRATIVE: CASE EVENT DATE: 2019
